FAERS Safety Report 9515972 (Version 2)
Quarter: 2013Q3

REPORT INFORMATION
  Report Type: Spontaneous
  Country: US (occurrence: US)
  Receive Date: 20130911
  Receipt Date: 20130911
  Transmission Date: 20140515
  Serious: Yes (Death, Other)
  Sender: FDA-Public Use
  Company Number: US-TAKEDA-TPA2012A04340

PATIENT
  Sex: 0

DRUGS (19)
  1. ACTOS [Suspect]
     Indication: TYPE 2 DIABETES MELLITUS
     Dosage: 30 MG, QD
     Route: 048
     Dates: start: 20090915, end: 20110311
  2. GLYBURIDE [Concomitant]
     Indication: DIABETES MELLITUS
  3. METFORMIN [Concomitant]
     Indication: DIABETES MELLITUS
     Dosage: 1000 MG, BID
     Dates: start: 201009, end: 201009
  4. SIMVASTATIN [Concomitant]
     Indication: LIPIDS INCREASED
  5. WELLBUTRIN [Concomitant]
     Indication: DEPRESSION
  6. BUPROPION HCL XL [Concomitant]
     Dosage: 150 MG, 1 CAP BY MOUTH
  7. CALCIUM CARBONATE/VITAMIN D3 [Concomitant]
     Dosage: 600-400UNIT TAB, 1 TAB BY MOUTH BID
     Route: 048
  8. DEXAMETHASONE                      /00016002/ [Concomitant]
     Dosage: 4 MG, QID
     Route: 048
  9. ESTRADIOL [Concomitant]
     Dosage: 1 MG, UNK
     Route: 048
  10. FISH OIL [Concomitant]
     Dosage: 1000 MG, UNK
  11. GLYBURIDE [Concomitant]
     Dosage: 5 MG, UNK
  12. INSULIN [Concomitant]
     Dosage: U-100 1ML , INJECT UPTO 4X DAY
  13. LEVETIRACETAM [Concomitant]
     Dosage: 500 MG, BID, 60 TABLET
     Route: 048
  14. MEDROXYPROGESTERONE [Concomitant]
     Dosage: 2.5 MG, QD, 90 TABLET
  15. MULTIVITAMIN                       /00831701/ [Concomitant]
     Dosage: QD
     Route: 048
  16. NOVOLOG [Concomitant]
     Dosage: 100 PER ML, UNK
     Route: 058
  17. OMEPRAZOLE [Concomitant]
     Dosage: 40 MG, QD
     Route: 048
  18. PERCOCET                           /00446701/ [Concomitant]
     Dosage: 5MG-325 MG TAB, 1 TABLET BY MOUTH EVERY 6 HRS
  19. TOPAMAX [Concomitant]
     Dosage: 50 MG, BID, 60 TABLET TAKING

REACTIONS (6)
  - Cardiac arrest [Fatal]
  - Non-small cell lung cancer metastatic [Fatal]
  - Lung cancer metastatic [Fatal]
  - Metastases to central nervous system [Fatal]
  - Neoplasm malignant [Fatal]
  - Lung neoplasm malignant [Fatal]
